FAERS Safety Report 14597961 (Version 1)
Quarter: 2018Q1

REPORT INFORMATION
  Report Type: Spontaneous
  Country: US (occurrence: US)
  Receive Date: 20180305
  Receipt Date: 20180305
  Transmission Date: 20180509
  Serious: No
  Sender: FDA-Public Use
  Company Number: US-PFIZER INC-2018089674

PATIENT
  Age: 57 Year
  Sex: Female

DRUGS (2)
  1. NEURONTIN [Suspect]
     Active Substance: GABAPENTIN
     Dosage: UNK
  2. ZONEGRAN [Suspect]
     Active Substance: ZONISAMIDE
     Dosage: UNK

REACTIONS (1)
  - Drug hypersensitivity [Unknown]
